FAERS Safety Report 5758392-7 (Version None)
Quarter: 2008Q2

REPORT INFORMATION
  Report Type: 
  Country: None (occurrence: None)
  Receive Date: 20080604
  Receipt Date: 20080523
  Transmission Date: 20081010
  Serious: Yes (Life-Threatening)
  Sender: FDA-Public Use
  Company Number: FR-PFIZER INC-2008045860

PATIENT
  Sex: Female

DRUGS (6)
  1. CELEBREX [Suspect]
     Indication: ARTHRITIS
     Dosage: TEXT:TDD: 1DF
     Route: 048
     Dates: start: 20030101, end: 20071112
  2. CAPTEA [Concomitant]
     Dates: start: 20030101, end: 20071112
  3. LORAZEPAM [Concomitant]
     Route: 048
     Dates: start: 20030101, end: 20071112
  4. ACETAMINOPHEN [Concomitant]
     Route: 048
  5. FUSIDIC ACID [Concomitant]
     Route: 048
  6. LANSOYL [Concomitant]
     Route: 048

REACTIONS (2)
  - ACUTE PULMONARY OEDEMA [None]
  - MYOCARDIAL INFARCTION [None]
